FAERS Safety Report 5759430-8 (Version None)
Quarter: 2008Q2

REPORT INFORMATION
  Report Type: 
  Country: None (occurrence: None)
  Receive Date: 20080605
  Receipt Date: 20080603
  Transmission Date: 20081010
  Serious: Yes (Other)
  Sender: FDA-Public Use
  Company Number: US-BRISTOL-MYERS SQUIBB COMPANY-14214514

PATIENT
  Age: 43 Year
  Sex: Female
  Weight: 78 kg

DRUGS (9)
  1. PACLITAXEL [Suspect]
     Indication: BREAST CANCER
     Dosage: 80MG/M2 ONCE A WEEK EVERY WEEK
     Route: 042
     Dates: start: 20080417, end: 20080430
  2. SUNITINIB MALATE [Suspect]
     Indication: BREAST CANCER
     Dosage: 12.5MG BID - 13MAR08-27MAR08 12.5MG QD - 17APR08-05MAY08
     Route: 048
     Dates: start: 20080417, end: 20080505
  3. EFFEXOR [Concomitant]
     Route: 048
     Dates: start: 20040101
  4. AMBIEN [Concomitant]
     Route: 048
     Dates: start: 20030701
  5. TRAMADOL HCL [Concomitant]
     Route: 048
     Dates: start: 20080201
  6. COMPAZINE [Concomitant]
     Route: 054
     Dates: start: 20080313
  7. LORAZEPAM [Concomitant]
     Route: 048
     Dates: start: 20030701
  8. IBUROFEN [Concomitant]
     Route: 048
     Dates: start: 20030101
  9. FENTANYL TRANSDERMAL SYSTEM [Concomitant]
     Route: 061
     Dates: start: 20080301

REACTIONS (1)
  - CHOLECYSTITIS [None]
